FAERS Safety Report 5335569-6 (Version None)
Quarter: 2007Q2

REPORT INFORMATION
  Report Type: 
  Country: None (occurrence: None)
  Receive Date: 20070526
  Receipt Date: 20070518
  Transmission Date: 20071010
  Serious: Yes (Other)
  Sender: FDA-Public Use
  Company Number: JP-PFIZER INC-2007041006

PATIENT
  Age: 71 Year
  Sex: Male

DRUGS (7)
  1. NORVASC [Suspect]
     Indication: HYPERTENSION
     Dosage: DAILY DOSE:5MG-FREQ:DAILY
     Route: 048
  2. FLIVAS [Suspect]
     Indication: BENIGN PROSTATIC HYPERPLASIA
     Dosage: DAILY DOSE:50MG-FREQ:DAILY
     Route: 048
  3. OZEX [Suspect]
     Indication: POST PROCEDURAL INFECTION
     Dosage: DAILY DOSE:600MG-FREQ:DAILY
     Route: 048
     Dates: start: 20070101, end: 20070101
  4. DIGOSIN [Concomitant]
     Route: 048
  5. CYANOCOBALAMIN [Concomitant]
     Route: 048
  6. SLOW-K [Concomitant]
     Route: 048
  7. ALINAMIN F [Concomitant]
     Route: 048

REACTIONS (1)
  - LOSS OF CONSCIOUSNESS [None]
